FAERS Safety Report 21124878 (Version 1)
Quarter: 2022Q3

REPORT INFORMATION
  Report Type: Spontaneous
  Country: None (occurrence: US)
  Receive Date: 20220725
  Receipt Date: 20220725
  Transmission Date: 20221027
  Serious: No
  Sender: FDA-Public Use
  Company Number: US-ITALFARMACO SPA-2131184

PATIENT
  Age: 64 Year
  Sex: Male

DRUGS (7)
  1. TIGLUTIK [Suspect]
     Active Substance: RILUZOLE
     Indication: Amyotrophic lateral sclerosis
     Route: 048
     Dates: start: 20220203
  2. AMBIEN [Concomitant]
     Active Substance: ZOLPIDEM TARTRATE
  3. CELECOXIB [Concomitant]
     Active Substance: CELECOXIB
  4. CLONAZEPAM [Concomitant]
     Active Substance: CLONAZEPAM
  5. LISINOPRIL [Concomitant]
     Active Substance: LISINOPRIL
  6. SUCRALFATE [Concomitant]
     Active Substance: SUCRALFATE
  7. VITAMIN D [Concomitant]
     Active Substance: VITAMIN D NOS

REACTIONS (1)
  - Abdominal discomfort [Not Recovered/Not Resolved]
